FAERS Safety Report 4605873-5 (Version None)
Quarter: 2005Q2

REPORT INFORMATION
  Report Type: 
  Country: None (occurrence: None)
  Receive Date: 20050303
  Receipt Date: 20050126
  Transmission Date: 20051028
  Serious: No
  Sender: FDA-Public Use
  Company Number: 200510132BWH

PATIENT
  Age: 48 Year
  Sex: Male
  Weight: 112.0385 kg

DRUGS (3)
  1. LEVITRA [Suspect]
     Indication: ERECTILE DYSFUNCTION
     Dosage: 20 MG, TOTAL DAILY, ORAL
     Route: 048
     Dates: start: 20041101
  2. MOTRIN [Concomitant]
  3. VICODIN [Concomitant]

REACTIONS (2)
  - EJACULATION DISORDER [None]
  - EJACULATION FAILURE [None]
